FAERS Safety Report 4313509-6 (Version None)
Quarter: 2004Q1

REPORT INFORMATION
  Report Type: 
  Country: None (occurrence: None)
  Receive Date: 20040304
  Receipt Date: 20040216
  Transmission Date: 20041129
  Serious: Yes (Death, Life-Threatening, Hospitalization, Other)
  Sender: FDA-Public Use
  Company Number: USA040259164

PATIENT
  Age: 51 Year
  Sex: Male

DRUGS (12)
  1. CIALIS [Suspect]
     Dosage: 20 MG
  2. CELEBREX [Concomitant]
  3. EFFEXOR [Concomitant]
  4. NORVASC [Concomitant]
  5. CLOZAPINE [Concomitant]
  6. ADVAIR DISKUS 100/50 [Concomitant]
  7. LISINOPRIL [Concomitant]
  8. HYDROCHLOROTHIAZIDE [Concomitant]
  9. ZOCOR [Concomitant]
  10. NEXIUM [Concomitant]
  11. MULTI-VITAMIN [Concomitant]
  12. IRON SUPPLEMENT [Concomitant]

REACTIONS (6)
  - ALCOHOL USE [None]
  - ANAPHYLACTIC SHOCK [None]
  - COMA [None]
  - DRUG INTERACTION [None]
  - FALL [None]
  - SWELLING FACE [None]
